FAERS Safety Report 23565932 (Version 1)
Quarter: 2024Q1

REPORT INFORMATION
  Report Type: Spontaneous
  Country: RU (occurrence: RU)
  Receive Date: 20240226
  Receipt Date: 20240226
  Transmission Date: 20240410
  Serious: Yes (Other)
  Sender: FDA-Public Use
  Company Number: RU-ORGANON-O2401RUS001881

PATIENT
  Age: 61 Year
  Sex: Female

DRUGS (1)
  1. DIPROSPAN [Suspect]
     Active Substance: BETAMETHASONE DIPROPIONATE\BETAMETHASONE SODIUM PHOSPHATE
     Indication: Blood uric acid increased
     Dosage: (2 MG + 5 MG/ML) - 2 ML INTRAMUSCULARLY DAILY
     Route: 030
     Dates: start: 2022

REACTIONS (3)
  - Gastric ulcer haemorrhage [Unknown]
  - Leukopenia [Unknown]
  - Drug ineffective [Unknown]

NARRATIVE: CASE EVENT DATE: 20220101
